FAERS Safety Report 6496024-3 (Version None)
Quarter: 2009Q4

REPORT INFORMATION
  Report Type: 
  Country: None (occurrence: None)
  Receive Date: 20091214
  Receipt Date: 20090916
  Transmission Date: 20100525
  Serious: No
  Sender: FDA-Public Use
  Company Number: US-BRISTOL-MYERS SQUIBB COMPANY-14782338

PATIENT
  Age: 70 Year
  Sex: Female

DRUGS (3)
  1. ABILIFY [Suspect]
     Indication: BIPOLAR DISORDER
     Dosage: DOSE 5 MG FOR 1 WEEK AND DOSE REDUCED TO 2MG FOR 1.5 WEEKS
  2. LITHIUM [Concomitant]
  3. KLONOPIN [Concomitant]

REACTIONS (2)
  - FATIGUE [None]
  - HALLUCINATION [None]
